FAERS Safety Report 6490087-7 (Version None)
Quarter: 2009Q4

REPORT INFORMATION
  Report Type: 
  Country: None (occurrence: None)
  Receive Date: 20091211
  Receipt Date: 20090130
  Transmission Date: 20100525
  Serious: No
  Sender: FDA-Public Use
  Company Number: A0766132A

PATIENT
  Age: 40 Year
  Sex: Male

DRUGS (3)
  1. FLONASE [Suspect]
     Dosage: 1SPR SINGLE DOSE
     Route: 045
     Dates: start: 20040101
  2. ALBUTEROL SULATE [Concomitant]
  3. SKIN CREAM [Concomitant]

REACTIONS (2)
  - NASAL ODOUR [None]
  - VOMITING [None]
